FAERS Safety Report 4307515-5 (Version None)
Quarter: 2004Q1

REPORT INFORMATION
  Report Type: 
  Country: None (occurrence: None)
  Receive Date: 20040226
  Receipt Date: 20040218
  Transmission Date: 20041129
  Serious: Yes (Hospitalization, Other)
  Sender: FDA-Public Use
  Company Number: 2002109190FR

PATIENT
  Age: 32 Year
  Sex: Female

DRUGS (4)
  1. SULFASALAZINE [Suspect]
     Indication: JUVENILE ARTHRITIS
     Dosage: 500 MG, BID, ORAL; 100 MG, BID ORAL
     Route: 048
     Dates: start: 20020424, end: 20020501
  2. SULFASALAZINE [Suspect]
     Indication: JUVENILE ARTHRITIS
     Dosage: 500 MG, BID, ORAL; 100 MG, BID ORAL
     Route: 048
     Dates: start: 20020502, end: 20020508
  3. CORTANCYL [Concomitant]
  4. KETOPROFEN [Concomitant]

REACTIONS (33)
  - ASTHENIA [None]
  - AURICULAR SWELLING [None]
  - COUGH [None]
  - COXSACKIE VIRAL INFECTION [None]
  - CYTOLYTIC HEPATITIS [None]
  - DRUG HYPERSENSITIVITY [None]
  - DYSPNOEA EXERTIONAL [None]
  - ECHO VIRUS INFECTION [None]
  - ERYTHEMA [None]
  - EXANTHEM [None]
  - FUNGAL INFECTION [None]
  - GRANULOMA [None]
  - HEADACHE [None]
  - HYPERTHERMIA [None]
  - HYPOAESTHESIA [None]
  - HYPOTENSION [None]
  - JAUNDICE HEPATOCELLULAR [None]
  - LEUKOPENIA [None]
  - LYMPHADENOPATHY [None]
  - MALAISE [None]
  - MENINGISM [None]
  - MENINGITIS ASEPTIC [None]
  - NEUTROPENIA [None]
  - OROPHARYNGEAL SWELLING [None]
  - PARAESTHESIA [None]
  - PYREXIA [None]
  - RASH MACULAR [None]
  - RESPIRATORY DISORDER [None]
  - SKIN DESQUAMATION [None]
  - SPLENOMEGALY [None]
  - STOMATITIS [None]
  - THROMBOCYTOPENIA [None]
  - VULVOVAGINITIS [None]
